FAERS Safety Report 10262366 (Version 1)
Quarter: 2014Q2

REPORT INFORMATION
  Report Type: Spontaneous
  Country: US (occurrence: US)
  Receive Date: 20140626
  Receipt Date: 20140626
  Transmission Date: 20141212
  Serious: Yes (Other)
  Sender: FDA-Public Use
  Company Number: US-PFIZER INC-2014172055

PATIENT
  Age: 60 Year
  Sex: Male
  Weight: 124.72 kg

DRUGS (5)
  1. LYRICA [Suspect]
     Indication: NEUROPATHY PERIPHERAL
     Dosage: 200 MG, 4X/DAY
     Route: 048
     Dates: start: 2008
  2. CELEBREX [Concomitant]
     Dosage: UNK
  3. EFFEXOR [Concomitant]
     Dosage: UNK
  4. ASPIRIN [Concomitant]
     Indication: ANTICOAGULANT THERAPY
     Dosage: UNK
  5. TESTOSTERONE [Concomitant]
     Indication: ANDROGEN DEFICIENCY
     Dosage: UNK

REACTIONS (3)
  - Cartilage injury [Unknown]
  - Meniscus injury [Unknown]
  - Pain [Unknown]
